FAERS Safety Report 4843703-7 (Version None)
Quarter: 2005Q4

REPORT INFORMATION
  Report Type: 
  Country: None (occurrence: None)
  Receive Date: 20051202
  Receipt Date: 20051128
  Transmission Date: 20060501
  Serious: Yes (Death)
  Sender: FDA-Public Use
  Company Number: PHBS2005JP17478

PATIENT
  Age: 5 Year
  Sex: Male

DRUGS (1)
  1. VOLTAREN [Suspect]
     Dosage: 12.5 MG/DAY
     Route: 054
     Dates: start: 19990601, end: 19990601

REACTIONS (3)
  - ENCEPHALOPATHY [None]
  - MULTI-ORGAN FAILURE [None]
  - SEPSIS [None]
